FAERS Safety Report 7130130-5 (Version None)
Quarter: 2010Q4

REPORT INFORMATION
  Report Type: 
  Country: None (occurrence: None)
  Receive Date: 20101201
  Receipt Date: 20101118
  Transmission Date: 20110411
  Serious: Yes (Death)
  Sender: FDA-Public Use
  Company Number: US-CELGENEUS-163-21880-10112789

PATIENT
  Sex: Female

DRUGS (1)
  1. REVLIMID [Suspect]
     Indication: MULTIPLE MYELOMA
     Route: 048
     Dates: start: 20070101

REACTIONS (6)
  - DEATH [None]
  - FALL [None]
  - FULL BLOOD COUNT ABNORMAL [None]
  - MEMORY IMPAIRMENT [None]
  - PELVIC FRACTURE [None]
  - UPPER LIMB FRACTURE [None]
